FAERS Safety Report 16698492 (Version 6)
Quarter: 2019Q4

REPORT INFORMATION
  Report Type: Spontaneous
  Country: DK (occurrence: DK)
  Receive Date: 20190813
  Receipt Date: 20191016
  Transmission Date: 20200122
  Serious: Yes (Hospitalization)
  Sender: FDA-Public Use
  Company Number: DK-NOVOPROD-676675

PATIENT
  Age: 53 Year
  Sex: Female
  Weight: 63 kg

DRUGS (11)
  1. NOVORAPID [Suspect]
     Active Substance: INSULIN ASPART
     Dosage: CORRECTION DOSE
     Route: 058
  2. UNIKALK FORTE [Concomitant]
     Indication: PRODUCT USED FOR UNKNOWN INDICATION
     Dosage: 1 X 2 PER DAY
     Route: 065
     Dates: start: 20090706
  3. DULOXETINE. [Concomitant]
     Active Substance: DULOXETINE
     Indication: PRODUCT USED FOR UNKNOWN INDICATION
     Dosage: 120 MG, QD
     Route: 065
     Dates: start: 20180528
  4. D3 VITAMIN [Concomitant]
     Indication: PRODUCT USED FOR UNKNOWN INDICATION
     Dosage: 70 ?G, QD
     Route: 065
     Dates: start: 20190528
  5. CARDIOSTAD [CARVEDILOL] [Concomitant]
     Indication: PRODUCT USED FOR UNKNOWN INDICATION
     Dosage: 10X1
     Route: 065
     Dates: start: 20190313
  6. DIVINA PLUS [Concomitant]
     Indication: PRODUCT USED FOR UNKNOWN INDICATION
     Dosage: 1 PIECE DAILY
     Route: 065
     Dates: start: 20120119
  7. NOVORAPID [Suspect]
     Active Substance: INSULIN ASPART
     Indication: TYPE 1 DIABETES MELLITUS
     Dosage: 15.25 IU, QD
     Route: 058
     Dates: start: 201509
  8. ATROVENT [Concomitant]
     Active Substance: IPRATROPIUM BROMIDE
     Indication: PRODUCT USED FOR UNKNOWN INDICATION
     Dosage: 84 MCG X 3
     Route: 045
     Dates: start: 20190528
  9. ESTROFEM [Concomitant]
     Indication: PRODUCT USED FOR UNKNOWN INDICATION
     Dosage: 1MGX1
     Route: 065
     Dates: start: 20120119
  10. EUTHYROX [Concomitant]
     Active Substance: LEVOTHYROXINE SODIUM
     Indication: PRODUCT USED FOR UNKNOWN INDICATION
     Dosage: 1000 ?G, QW
     Route: 065
     Dates: start: 20170612
  11. LIOTHYRONINE [Concomitant]
     Active Substance: LIOTHYRONINE
     Indication: PRODUCT USED FOR UNKNOWN INDICATION
     Dosage: 5 MCG X 2
     Route: 065
     Dates: start: 20171212

REACTIONS (3)
  - Diabetic ketoacidosis [Recovered/Resolved]
  - Drug ineffective [Unknown]
  - Incorrect dose administered [Unknown]

NARRATIVE: CASE EVENT DATE: 20190618
